FAERS Safety Report 4984067-8 (Version None)
Quarter: 2006Q1

REPORT INFORMATION
  Report Type: 
  Country: None (occurrence: None)
  Receive Date: 20060302
  Receipt Date: 20060126
  Transmission Date: 20060701
  Serious: No
  Sender: FDA-Public Use
  Company Number: S06-USA-00316-01

PATIENT
  Age: 66 Year
  Sex: Female

DRUGS (4)
  1. CAMPRAL [Suspect]
     Indication: ALCOHOLISM
     Dosage: 666 MG TID PO
     Route: 048
     Dates: start: 20050801, end: 20060101
  2. CAMPRAL [Suspect]
     Indication: ALCOHOLISM
     Dosage: 666 MG TID PO
     Route: 048
     Dates: start: 20060101
  3. PROTONIX [Concomitant]
  4. FOSAMAX [Concomitant]

REACTIONS (3)
  - ALCOHOLISM [None]
  - ERYTHEMA [None]
  - FLUSHING [None]
